FAERS Safety Report 9753786 (Version 2)
Quarter: 2015Q3

REPORT INFORMATION
  Report Type: Spontaneous
  Country: US (occurrence: US)
  Receive Date: 20131213
  Receipt Date: 20150805
  Transmission Date: 20151125
  Serious: No
  Sender: FDA-Public Use
  Company Number: US-GILEAD-2010-0027088

PATIENT
  Age: 73 Year
  Sex: Female

DRUGS (16)
  1. LETAIRIS [Suspect]
     Active Substance: AMBRISENTAN
     Indication: PULMONARY ARTERIAL HYPERTENSION
     Route: 048
     Dates: start: 20090624
  2. XALATAN [Concomitant]
     Active Substance: LATANOPROST
  3. TOPROL XL [Concomitant]
     Active Substance: METOPROLOL SUCCINATE
  4. SYNTHROID [Concomitant]
     Active Substance: LEVOTHYROXINE SODIUM
  5. METFORMIN [Concomitant]
     Active Substance: METFORMIN HYDROCHLORIDE
  6. TRICOR [Concomitant]
     Active Substance: FENOFIBRATE
  7. PLAVIX [Concomitant]
     Active Substance: CLOPIDOGREL BISULFATE
  8. VYTORIN [Concomitant]
     Active Substance: EZETIMIBE\SIMVASTATIN
  9. SPIRONOLACTONE. [Concomitant]
     Active Substance: SPIRONOLACTONE
  10. PROZAC [Concomitant]
     Active Substance: FLUOXETINE HYDROCHLORIDE
  11. NEXIUM [Concomitant]
     Active Substance: ESOMEPRAZOLE MAGNESIUM
  12. FUROSEMIDE. [Concomitant]
     Active Substance: FUROSEMIDE
  13. VITAMIN B12 [Concomitant]
     Active Substance: CYANOCOBALAMIN
  14. COZAAR [Concomitant]
     Active Substance: LOSARTAN POTASSIUM
  15. KLOR-CON [Concomitant]
     Active Substance: POTASSIUM CHLORIDE
  16. LOTREL [Concomitant]
     Active Substance: AMLODIPINE BESYLATE\BENAZEPRIL HYDROCHLORIDE

REACTIONS (1)
  - Anaemia [Recovering/Resolving]
